FAERS Safety Report 5039426-4 (Version None)
Quarter: 2006Q2

REPORT INFORMATION
  Report Type: 
  Country: None (occurrence: None)
  Receive Date: 20060623
  Receipt Date: 20060613
  Transmission Date: 20061013
  Serious: Yes (Hospitalization, Other)
  Sender: FDA-Public Use
  Company Number: 2006075927

PATIENT
  Age: 53 Year
  Sex: Male
  Weight: 108.8633 kg

DRUGS (2)
  1. CELEBREX [Suspect]
     Indication: ARTHRALGIA
     Dosage: 400 MG (200 MG, 2 IN 1 D),
     Dates: start: 19990701
  2. CELEBREX [Suspect]
     Indication: INJURY
     Dosage: 400 MG (200 MG, 2 IN 1 D),
     Dates: start: 19990701

REACTIONS (10)
  - ANXIETY [None]
  - ARTERIAL OCCLUSIVE DISEASE [None]
  - BLOOD CHOLESTEROL INCREASED [None]
  - CARDIAC DISORDER [None]
  - CHEST PAIN [None]
  - DIABETES MELLITUS [None]
  - FEAR [None]
  - GASTROINTESTINAL DISORDER [None]
  - MYOCARDIAL INFARCTION [None]
  - STENT PLACEMENT [None]
